FAERS Safety Report 8788529 (Version 1)
Quarter: 2012Q4

REPORT INFORMATION
  Report Type: 
  Country: US (occurrence: US)
  Receive Date: 20120914
  Receipt Date: 20120914
  Transmission Date: 20130627
  Serious: No
  Sender: FDA-Public Use
  Company Number: US-VERTEX PHARMACEUTICAL INC.-AE-2012-011695

PATIENT
  Sex: Male

DRUGS (3)
  1. VX-950 [Suspect]
     Indication: HEPATITIS C
     Dosage: 750 mg, UNK
     Route: 048
     Dates: start: 201207
  2. PEGINTRON                          /01543001/ [Concomitant]
     Indication: HEPATITIS C
     Dosage: 96 ?g, UNK
     Route: 058
     Dates: start: 201207
  3. RIBASPHERE [Concomitant]
     Indication: HEPATITIS C
     Dosage: 600 mg, bid
     Route: 048
     Dates: start: 201207

REACTIONS (6)
  - Influenza like illness [Unknown]
  - Irritability [Unknown]
  - Insomnia [Not Recovered/Not Resolved]
  - Haemorrhoidal haemorrhage [Unknown]
  - Proctalgia [Unknown]
  - Diarrhoea [Not Recovered/Not Resolved]
